FAERS Safety Report 4382472-4 (Version None)
Quarter: 2004Q2

REPORT INFORMATION
  Report Type: 
  Country: None (occurrence: None)
  Receive Date: 20040617
  Receipt Date: 20040607
  Transmission Date: 20050107
  Serious: Yes (Life-Threatening)
  Sender: FDA-Public Use
  Company Number: 2004UW11860

PATIENT
  Age: 11 Year
  Sex: Male
  Weight: 40 kg

DRUGS (9)
  1. PRILOSEC [Suspect]
  2. NEUPOGEN [Suspect]
     Dosage: 210 MCG/DAY, 1 IN 1 DAY
     Dates: start: 20040313, end: 20040325
  3. METHYLPREDNISOLONE SODIUM SUCCINATE [Suspect]
  4. ACYCLOVIR [Suspect]
  5. FLUCONAZOLE [Suspect]
  6. CYCLOSPORINE [Suspect]
  7. CETAZIDIME [Concomitant]
  8. TEICOPLANIN [Concomitant]
  9. CLONAZEPAM [Concomitant]

REACTIONS (4)
  - BRONCHOSPASM [None]
  - DYSPNOEA [None]
  - OXYGEN SATURATION DECREASED [None]
  - TACHYCARDIA [None]
